FAERS Safety Report 4433443-0 (Version None)
Quarter: 2004Q3

REPORT INFORMATION
  Report Type: 
  Country: None (occurrence: None)
  Receive Date: 20040826
  Receipt Date: 20040823
  Transmission Date: 20050211
  Serious: Yes (Other)
  Sender: FDA-Public Use
  Company Number: PHBS2004JP11046

PATIENT
  Sex: Male

DRUGS (2)
  1. DIOVAN [Suspect]
     Route: 048
  2. NORVASC [Concomitant]
     Route: 048

REACTIONS (2)
  - CHROMATURIA [None]
  - RHABDOMYOLYSIS [None]
